FAERS Safety Report 5392177-9 (Version None)
Quarter: 2007Q3

REPORT INFORMATION
  Report Type: 
  Country: None (occurrence: None)
  Receive Date: 20070717
  Receipt Date: 20070717
  Transmission Date: 20080115
  Serious: Yes (Other)
  Sender: FDA-Public Use
  Company Number: None

PATIENT
  Sex: Female
  Weight: 79.3795 kg

DRUGS (2)
  1. MOBIC [Suspect]
     Indication: ARTHRALGIA
     Dosage: ONE TABLET DAILY PO
     Route: 048
     Dates: start: 20060328, end: 20070102
  2. MOBIC [Suspect]
     Indication: INFLAMMATION
     Dosage: ONE TABLET DAILY PO
     Route: 048
     Dates: start: 20060328, end: 20070102

REACTIONS (4)
  - HAEMORRHAGE [None]
  - PAIN [None]
  - PYREXIA [None]
  - VOMITING [None]
